FAERS Safety Report 6024833-3 (Version None)
Quarter: 2008Q4

REPORT INFORMATION
  Report Type: 
  Country: None (occurrence: None)
  Receive Date: 20081229
  Receipt Date: 20081208
  Transmission Date: 20090506
  Serious: Yes (Other)
  Sender: FDA-Public Use
  Company Number: 8031082

PATIENT

DRUGS (2)
  1. KEPPRA [Suspect]
     Indication: EPILEPSY
     Dates: start: 20010101
  2. KEPPRA [Suspect]
     Indication: EPILEPSY
     Dosage: 3500 MG/ D PO
     Dates: start: 20070101

REACTIONS (5)
  - AGGRESSION [None]
  - AGITATION [None]
  - LOSS OF EMPLOYMENT [None]
  - MENTAL DISORDER [None]
  - OVERDOSE [None]
